FAERS Safety Report 14717922 (Version 1)
Quarter: 2018Q2

REPORT INFORMATION
  Report Type: Spontaneous
  Country: US (occurrence: US)
  Receive Date: 20180404
  Receipt Date: 20180404
  Transmission Date: 20180711
  Serious: No
  Sender: FDA-Public Use
  Company Number: US-SA-2018SA051317

PATIENT
  Age: 31 Year
  Sex: Female

DRUGS (1)
  1. DUPIXENT [Suspect]
     Active Substance: DUPILUMAB
     Indication: DERMATITIS HERPETIFORMIS
     Route: 058
     Dates: start: 20171013

REACTIONS (4)
  - Lacrimation increased [Not Recovered/Not Resolved]
  - Product use in unapproved indication [Unknown]
  - Dry eye [Not Recovered/Not Resolved]
  - Product use issue [Unknown]
